FAERS Safety Report 10899331 (Version 2)
Quarter: 2015Q1

REPORT INFORMATION
  Report Type: Spontaneous
  Country: US (occurrence: US)
  Receive Date: 20150309
  Receipt Date: 20150316
  Transmission Date: 20150721
  Serious: Yes (Hospitalization, Other)
  Sender: FDA-Public Use
  Company Number: US-BAXTER-2015BAX012029

PATIENT
  Age: 36 Year
  Sex: Female

DRUGS (1)
  1. 0.9% SODIUM CHLORIDE INJECTION [Suspect]
     Active Substance: SODIUM CHLORIDE
     Indication: PERITONEAL DIALYSIS
     Route: 042

REACTIONS (2)
  - Myocardial infarction [Recovered/Resolved]
  - Vascular graft thrombosis [Recovered/Resolved]

NARRATIVE: CASE EVENT DATE: 201411
